FAERS Safety Report 12332968 (Version 2)
Quarter: 2016Q2

REPORT INFORMATION
  Report Type: Spontaneous
  Country: TW (occurrence: TW)
  Receive Date: 20160504
  Receipt Date: 20160504
  Transmission Date: 20160815
  Serious: Yes (Life-Threatening)
  Sender: FDA-Public Use
  Company Number: TW-WATSON-2016-08690

PATIENT
  Age: 70 Year
  Sex: Female

DRUGS (7)
  1. TRAZODONE HYDROCHLORIDE (WATSON LABORATORIES) [Interacting]
     Active Substance: TRAZODONE HYDROCHLORIDE
     Dosage: 100 MG, DAILY
     Route: 065
  2. BUPROPION HYDROCHLORIDE (ACTAVIS LABORATORIES FL) [Interacting]
     Active Substance: BUPROPION HYDROCHLORIDE
     Dosage: 300 MG, DAILY
     Route: 005
  3. QUETIAPINE (UNKNOWN) [Interacting]
     Active Substance: QUETIAPINE
     Indication: MAJOR DEPRESSION
     Dosage: 200 MG, DAILY
     Route: 065
  4. QUETIAPINE (UNKNOWN) [Interacting]
     Active Substance: QUETIAPINE
     Dosage: 400 MG, DAILY
     Route: 065
  5. TRAZODONE HYDROCHLORIDE (WATSON LABORATORIES) [Suspect]
     Active Substance: TRAZODONE HYDROCHLORIDE
     Indication: MAJOR DEPRESSION
     Dosage: 50 MG, DAILY
     Route: 065
  6. PROPOFOL. [Concomitant]
     Active Substance: PROPOFOL
     Indication: GENERAL ANAESTHESIA
     Dosage: UNK
     Route: 042
  7. BUPROPION HYDROCHLORIDE (ACTAVIS LABORATORIES FL) [Interacting]
     Active Substance: BUPROPION HYDROCHLORIDE
     Indication: MAJOR DEPRESSION
     Dosage: 150 MG, DAILY
     Route: 065

REACTIONS (2)
  - Serotonin syndrome [Recovered/Resolved]
  - Potentiating drug interaction [Recovered/Resolved]
